FAERS Safety Report 4335674-7 (Version None)
Quarter: 2004Q2

REPORT INFORMATION
  Report Type: 
  Country: None (occurrence: None)
  Receive Date: 20040406
  Receipt Date: 20040322
  Transmission Date: 20050107
  Serious: Yes (Hospitalization)
  Sender: FDA-Public Use
  Company Number: M04-INT-048

PATIENT
  Age: 82 Year
  Sex: Male

DRUGS (4)
  1. INTEGRILIN [Suspect]
     Indication: PERIPHERAL ARTERY ANGIOPLASTY
     Dosage: 180 MCG/KG X2:  INTRAVENOUS BOLUS
     Route: 040
  2. ASPIRIN [Concomitant]
  3. CLOPIDOGREL [Concomitant]
  4. HEPARIN [Concomitant]

REACTIONS (4)
  - CONDITION AGGRAVATED [None]
  - GRAND MAL CONVULSION [None]
  - HEMIPARESIS [None]
  - UPPER RESPIRATORY TRACT INFECTION [None]
